FAERS Safety Report 10412123 (Version 1)
Quarter: 2014Q3

REPORT INFORMATION
  Report Type: Spontaneous
  Country: US (occurrence: None)
  Receive Date: 20140826
  Receipt Date: 20140826
  Transmission Date: 20150326
  Serious: Yes (Hospitalization)
  Sender: FDA-Public Use
  Company Number: None

PATIENT
  Age: 65 Year
  Sex: Female
  Weight: 107 kg

DRUGS (1)
  1. TAXOL [Suspect]
     Active Substance: PACLITAXEL

REACTIONS (8)
  - Fall [None]
  - Pain in extremity [None]
  - Irritability [None]
  - Ataxia [None]
  - Balance disorder [None]
  - Nervous system disorder [None]
  - Paraesthesia [None]
  - Romberg test positive [None]

NARRATIVE: CASE EVENT DATE: 20140626
